FAERS Safety Report 7862770-X (Version None)
Quarter: 2011Q4

REPORT INFORMATION
  Report Type: 
  Country: None (occurrence: None)
  Receive Date: 20111027
  Receipt Date: 20101112
  Transmission Date: 20120403
  Serious: No
  Sender: FDA-Public Use
  Company Number: US-AMGEN-USASP2010003341

PATIENT
  Sex: Female
  Weight: 66.939 kg

DRUGS (2)
  1. ENBREL [Suspect]
     Indication: RHEUMATOID ARTHRITIS
     Dosage: 50 MG, QWK
     Route: 058
     Dates: start: 20040401
  2. METHOTREXATE [Concomitant]
     Indication: RHEUMATOID ARTHRITIS
     Dosage: 8 UNK, QWK
     Route: 048
     Dates: start: 20040103

REACTIONS (5)
  - PRURITUS [None]
  - RASH [None]
  - ONYCHOMYCOSIS [None]
  - DANDRUFF [None]
  - TINEA PEDIS [None]
